FAERS Safety Report 15785249 (Version 4)
Quarter: 2019Q2

REPORT INFORMATION
  Report Type: Spontaneous
  Country: US (occurrence: US)
  Receive Date: 20190103
  Receipt Date: 20190412
  Transmission Date: 20190711
  Serious: No
  Sender: FDA-Public Use
  Company Number: US-PFIZER INC-2018535170

PATIENT
  Age: 76 Year
  Sex: Female
  Weight: 53.52 kg

DRUGS (1)
  1. SUTENT [Suspect]
     Active Substance: SUNITINIB MALATE
     Indication: PANCREATIC NEUROENDOCRINE TUMOUR
     Dosage: 37.5 MG, DAILY
     Route: 048
     Dates: start: 201811, end: 201901

REACTIONS (6)
  - Eating disorder [Not Recovered/Not Resolved]
  - Nocturia [Unknown]
  - Fall [Not Recovered/Not Resolved]
  - Weight decreased [Not Recovered/Not Resolved]
  - Blood pressure fluctuation [Unknown]
  - Malaise [Unknown]

NARRATIVE: CASE EVENT DATE: 201812
